FAERS Safety Report 25701594 (Version 1)
Quarter: 2025Q3

REPORT INFORMATION
  Report Type: Report from Study
  Country: CA (occurrence: CA)
  Receive Date: 20250819
  Receipt Date: 20250819
  Transmission Date: 20251021
  Serious: Yes (Hospitalization, Other)
  Sender: ABBVIE
  Company Number: CA-ABBVIE-6418041

PATIENT
  Age: 44 Year
  Sex: Male

DRUGS (1)
  1. SKYRIZI [Suspect]
     Active Substance: RISANKIZUMAB-RZAA
     Indication: Psoriasis
     Dosage: DOSE FORM: INJECTION
     Route: 058

REACTIONS (3)
  - Road traffic accident [Unknown]
  - Limb injury [Unknown]
  - Disorientation [Unknown]

NARRATIVE: CASE EVENT DATE: 20250715
